FAERS Safety Report 7567898-X (Version None)
Quarter: 2011Q2

REPORT INFORMATION
  Report Type: 
  Country: None (occurrence: None)
  Receive Date: 20110616
  Receipt Date: 20110602
  Transmission Date: 20111010
  Serious: Yes (Other)
  Sender: FDA-Public Use
  Company Number: JP-2011-10757

PATIENT
  Age: 54 Year
  Sex: Male
  Weight: 58 kg

DRUGS (10)
  1. NIPOLAZIN (MIEQUITAZINE) [Concomitant]
  2. MUCODYNE (CARBOCISTEINE) [Concomitant]
  3. SOLANTAL (TIARAMIDE HYDROCHLORIDE) [Concomitant]
  4. ALLEGRA [Concomitant]
  5. LASIX [Concomitant]
  6. SAMSCA [Suspect]
     Dosage: 7.5 MG MILLIGRAM(S), QD, ORAL ; 30 MILLIGRAM(S), DAILY DOSE, ORAL
     Route: 048
     Dates: start: 20110316, end: 20110317
  7. ATARAX [Concomitant]
  8. TORSEMIDE [Concomitant]
  9. SOLDEM 3A (MAINTENANCE MEDIUM) [Concomitant]
  10. URSO 250 [Concomitant]

REACTIONS (4)
  - CARDIAC FAILURE [None]
  - LIVER DISORDER [None]
  - ALANINE AMINOTRANSFERASE INCREASED [None]
  - PLEURAL EFFUSION [None]
